FAERS Safety Report 24686291 (Version 2)
Quarter: 2024Q4

REPORT INFORMATION
  Report Type: Spontaneous
  Country: GB (occurrence: GB)
  Receive Date: 20241202
  Receipt Date: 20241230
  Transmission Date: 20250115
  Serious: Yes (Hospitalization)
  Sender: MYLAN
  Company Number: GB-MYLANLABS-2024M1102533

PATIENT
  Age: 37 Year
  Sex: Male

DRUGS (4)
  1. CLOZARIL [Suspect]
     Active Substance: CLOZAPINE
     Indication: Schizoaffective disorder
     Dosage: UNK UNK, BID (100 MILLIGRAM IN MORNING AND 175 MILLIGRAM AT NIGHT)
     Route: 048
     Dates: start: 20240919
  2. LITHIUM [Concomitant]
     Active Substance: LITHIUM
     Indication: Schizoaffective disorder
     Dosage: 300 MILLIGRAM, QD (ONCE DAILY)
     Route: 048
  3. OMEPRAZOLE [Concomitant]
     Active Substance: OMEPRAZOLE
     Indication: Gastric ulcer
     Dosage: 20 MILLIGRAM, QD (20MG ONCE DAILY)
     Route: 048
  4. OLIVE OIL [Concomitant]
     Active Substance: OLIVE OIL
     Indication: Excessive cerumen production
     Dosage: 1 DOSAGE FORM, BID (1 DROP TWICE DAILY)
     Route: 061
     Dates: start: 20241113

REACTIONS (4)
  - Pneumonia [Recovered/Resolved]
  - Tooth infection [Recovered/Resolved]
  - Leukocytosis [Recovered/Resolved]
  - Neutrophilia [Recovered/Resolved]

NARRATIVE: CASE EVENT DATE: 20241112
